FAERS Safety Report 15396843 (Version 1)
Quarter: 2018Q3

REPORT INFORMATION
  Report Type: Spontaneous
  Country: BE (occurrence: BE)
  Receive Date: 20180918
  Receipt Date: 20180918
  Transmission Date: 20181010
  Serious: Yes (Other)
  Sender: FDA-Public Use
  Company Number: BE-MYLANLABS-2018M1067282

PATIENT
  Sex: Female

DRUGS (3)
  1. FLUOROURACIL. [Suspect]
     Active Substance: FLUOROURACIL
     Indication: BREAST CANCER
     Dosage: 600 MG/M2, CYCLIC (SIX CYCLES ON DAYS 1 AND 8 EVERY 28 DAYS)
     Route: 042
  2. METHOTREXATE. [Suspect]
     Active Substance: METHOTREXATE
     Indication: BREAST CANCER
     Dosage: 40 MG/M2, CYCLIC (SIX CYCLES ON DAYS, 1 AND 8 EVERY 28 DAYS)
     Route: 042
  3. CYCLOPHOSPHAMIDE. [Suspect]
     Active Substance: CYCLOPHOSPHAMIDE
     Indication: BREAST CANCER
     Dosage: 100 MG/M2, CYCLIC (SIX CYCLES, ON DAYS 1 AND THROUGH 14)
     Route: 048

REACTIONS (1)
  - Cardiac failure congestive [Unknown]
